FAERS Safety Report 7027969-3 (Version None)
Quarter: 2010Q4

REPORT INFORMATION
  Report Type: 
  Country: None (occurrence: None)
  Receive Date: 20101001
  Receipt Date: 20101001
  Transmission Date: 20110411
  Serious: Yes (Hospitalization)
  Sender: FDA-Public Use
  Company Number: None

PATIENT
  Age: 26 Year
  Sex: Male
  Weight: 94.8 kg

DRUGS (1)
  1. CITALOPRAM HYDROBROMIDE [Suspect]
     Indication: POST-TRAUMATIC STRESS DISORDER
     Dosage: 40 MG EVERY DAY PO
     Route: 048
     Dates: start: 20100524, end: 20100802

REACTIONS (7)
  - AGITATION [None]
  - CONDITION AGGRAVATED [None]
  - CONFUSIONAL STATE [None]
  - DELUSION [None]
  - HALLUCINATION [None]
  - POST-TRAUMATIC STRESS DISORDER [None]
  - PSYCHOTIC DISORDER [None]
